FAERS Safety Report 7627131-7 (Version None)
Quarter: 2011Q3

REPORT INFORMATION
  Report Type: 
  Country: None (occurrence: None)
  Receive Date: 20110721
  Receipt Date: 20110712
  Transmission Date: 20111222
  Serious: Yes (Hospitalization)
  Sender: FDA-Public Use
  Company Number: BR-ASTRAZENECA-2011SE41930

PATIENT
  Age: 80 Year
  Sex: Female
  Weight: 71 kg

DRUGS (9)
  1. METFORMIN HYDROCHLORIDE [Concomitant]
     Indication: DIABETES MELLITUS
     Route: 048
  2. ASPIRINE PREVENT [Concomitant]
     Route: 048
  3. METOPROLOL SUCCINATE [Suspect]
     Indication: HYPERTENSION
     Route: 048
     Dates: start: 20110611, end: 20110712
  4. CEBRALAT [Concomitant]
     Route: 048
  5. PROPRANOLOL [Suspect]
     Indication: HYPERTENSION
     Route: 048
     Dates: start: 20090101, end: 20090101
  6. CHLORTHALIDONE [Concomitant]
     Dosage: HALF TABLET
     Route: 048
  7. LOSARTAN POTASSIUM [Concomitant]
     Route: 048
  8. OMEPRAZOLE [Suspect]
     Indication: GASTRIC INFECTION
     Route: 048
     Dates: start: 20090101
  9. PRESSOMED [Concomitant]
     Route: 048

REACTIONS (5)
  - FACIAL ASYMMETRY [None]
  - ARTHROSCOPY [None]
  - ARTHRALGIA [None]
  - BLOOD PRESSURE INADEQUATELY CONTROLLED [None]
  - CONFUSIONAL STATE [None]
